FAERS Safety Report 9463205 (Version 4)
Quarter: 2015Q2

REPORT INFORMATION
  Report Type: Spontaneous
  Country: FR (occurrence: FR)
  Receive Date: 20130818
  Receipt Date: 20150504
  Transmission Date: 20150821
  Serious: Yes (Other)
  Sender: FDA-Public Use
  Company Number: PHHY2013FR086163

PATIENT
  Age: 53 Year
  Sex: Male

DRUGS (18)
  1. QUETIAPINE [Suspect]
     Active Substance: QUETIAPINE
     Indication: SCHIZOPHRENIA
  2. CLOZAPINE. [Suspect]
     Active Substance: CLOZAPINE
     Indication: FAHR^S DISEASE
     Dosage: 400 MG, UNK
     Route: 065
  3. HALOPERIDOL. [Suspect]
     Active Substance: HALOPERIDOL
     Indication: FAHR^S DISEASE
     Dosage: 20 MG, QD
     Route: 065
  4. QUETIAPINE [Suspect]
     Active Substance: QUETIAPINE
     Indication: PSYCHOTIC DISORDER
  5. AMISULPRIDE [Suspect]
     Active Substance: AMISULPRIDE
     Indication: SCHIZOPHRENIA
  6. HALOPERIDOL. [Suspect]
     Active Substance: HALOPERIDOL
     Indication: SCHIZOPHRENIA
  7. RISPERIDONE. [Suspect]
     Active Substance: RISPERIDONE
     Indication: FAHR^S DISEASE
     Dosage: 10 MG, QD
     Route: 065
  8. AMISULPRIDE [Suspect]
     Active Substance: AMISULPRIDE
     Indication: PSYCHOTIC DISORDER
  9. HALOPERIDOL. [Suspect]
     Active Substance: HALOPERIDOL
     Indication: PSYCHOTIC DISORDER
  10. OLANZAPINE. [Suspect]
     Active Substance: OLANZAPINE
     Indication: FAHR^S DISEASE
     Dosage: 65 MG, QD
     Route: 065
  11. RISPERIDONE. [Suspect]
     Active Substance: RISPERIDONE
     Indication: SCHIZOPHRENIA
  12. RISPERIDONE. [Suspect]
     Active Substance: RISPERIDONE
     Indication: PSYCHOTIC DISORDER
  13. QUETIAPINE [Suspect]
     Active Substance: QUETIAPINE
     Indication: FAHR^S DISEASE
     Dosage: 800 MG, QD
     Route: 065
  14. CLOZAPINE. [Suspect]
     Active Substance: CLOZAPINE
     Indication: SCHIZOPHRENIA
  15. CLOZAPINE. [Suspect]
     Active Substance: CLOZAPINE
     Indication: PSYCHOTIC DISORDER
  16. AMISULPRIDE [Suspect]
     Active Substance: AMISULPRIDE
     Indication: FAHR^S DISEASE
     Dosage: 1200 MG, QD
     Route: 065
  17. OLANZAPINE. [Suspect]
     Active Substance: OLANZAPINE
     Indication: SCHIZOPHRENIA
  18. OLANZAPINE. [Suspect]
     Active Substance: OLANZAPINE
     Indication: PSYCHOTIC DISORDER

REACTIONS (7)
  - Dystonia [Unknown]
  - Akathisia [Unknown]
  - Oculogyric crisis [Unknown]
  - Extrapyramidal disorder [Unknown]
  - Tardive dyskinesia [Unknown]
  - Tremor [Unknown]
  - Drug effect incomplete [Unknown]
